FAERS Safety Report 12721835 (Version 2)
Quarter: 2016Q3

REPORT INFORMATION
  Report Type: Spontaneous
  Country: FR (occurrence: FR)
  Receive Date: 20160907
  Receipt Date: 20160920
  Transmission Date: 20161109
  Serious: Yes (Other)
  Sender: FDA-Public Use
  Company Number: FR-TEVA-646918ISR

PATIENT
  Age: 74 Year
  Sex: Male

DRUGS (8)
  1. OMEPRAZOLE TEVA [Suspect]
     Active Substance: OMEPRAZOLE
     Route: 048
     Dates: start: 201202, end: 201512
  2. BETAXOLOL TEVA SANTE 20 MG [Suspect]
     Active Substance: BETAXOLOL HYDROCHLORIDE
     Route: 048
     Dates: start: 201311, end: 201512
  3. AMLODIPINE [Suspect]
     Active Substance: AMLODIPINE BESYLATE
     Route: 048
     Dates: start: 201202, end: 201512
  4. LIPANOR [Concomitant]
     Active Substance: CIPROFIBRATE
     Dosage: REPLACED BY CIPROFIBRATE WINTHROP
     Route: 048
     Dates: end: 201206
  5. MONICOR [Concomitant]
     Active Substance: ISOSORBIDE MONONITRATE
     Dosage: IN LONGTERM
     Route: 048
  6. CIPROFIBRATE WINTHROP [Concomitant]
     Route: 048
     Dates: start: 201202, end: 201512
  7. ALLOPURINOL TEVA [Suspect]
     Active Substance: ALLOPURINOL
     Route: 048
     Dates: start: 201202, end: 201512
  8. KERLONE [Concomitant]
     Active Substance: BETAXOLOL HYDROCHLORIDE
     Dosage: REPLACED BY BETAXOLOL TEVA
     Route: 048
     Dates: end: 201311

REACTIONS (3)
  - Guttate psoriasis [Not Recovered/Not Resolved]
  - Toxic skin eruption [Recovering/Resolving]
  - Product substitution issue [Recovering/Resolving]

NARRATIVE: CASE EVENT DATE: 201511
